FAERS Safety Report 24275366 (Version 2)
Quarter: 2024Q3

REPORT INFORMATION
  Report Type: Spontaneous
  Country: US (occurrence: US)
  Receive Date: 20240903
  Receipt Date: 20240926
  Transmission Date: 20241016
  Serious: Yes (Other)
  Sender: AUROBINDO
  Company Number: US-AUROBINDO-AUR-APL-2024-042582

PATIENT
  Age: 33 Year
  Sex: Female

DRUGS (3)
  1. VASOPRESSIN [Suspect]
     Active Substance: VASOPRESSIN
     Indication: Septic shock
     Dosage: UNK
     Route: 065
  2. DOBUTAMINE [Suspect]
     Active Substance: DOBUTAMINE HYDROCHLORIDE
     Indication: Septic shock
     Dosage: UNK
     Route: 065
  3. EPINEPHRINE [Suspect]
     Active Substance: EPINEPHRINE
     Indication: Septic shock
     Dosage: UNK
     Route: 065

REACTIONS (2)
  - Inappropriate antidiuretic hormone secretion [Recovering/Resolving]
  - Hyponatraemia [Recovering/Resolving]
